FAERS Safety Report 20392349 (Version 1)
Quarter: 2022Q1

REPORT INFORMATION
  Report Type: Spontaneous
  Country: US (occurrence: None)
  Receive Date: 20220128
  Receipt Date: 20220128
  Transmission Date: 20220423
  Serious: Yes (Other)
  Sender: FDA-Public Use
  Company Number: None

PATIENT
  Age: 64 Year
  Sex: Male
  Weight: 73.8 kg

DRUGS (18)
  1. FULPHILA [Suspect]
     Active Substance: PEGFILGRASTIM-JMDB
     Indication: Malignant melanoma
     Dosage: OTHER FREQUENCY : EVERY 14 DAYS;?
     Route: 058
     Dates: start: 20210401
  2. ZARXIO [Suspect]
     Active Substance: FILGRASTIM-SNDZ
     Indication: Malignant melanoma
     Dosage: OTHER FREQUENCY : EVERY 14 DAYS;?
     Route: 058
     Dates: start: 20220105
  3. PROCHLORPERAZINE [Concomitant]
     Active Substance: PROCHLORPERAZINE
  4. CRESTOR [Concomitant]
     Active Substance: ROSUVASTATIN CALCIUM
  5. phospha [Concomitant]
  6. TRAZODONE [Concomitant]
     Active Substance: TRAZODONE HYDROCHLORIDE
  7. UREA [Concomitant]
     Active Substance: UREA
  8. POLYETHYLENE GLYCOL [Concomitant]
     Active Substance: POLYETHYLENE GLYCOL
  9. LORAZEPAM [Concomitant]
     Active Substance: LORAZEPAM
  10. LOPERAMIDE [Concomitant]
     Active Substance: LOPERAMIDE
  11. LISINOPRIL [Concomitant]
     Active Substance: LISINOPRIL
  12. KETOCONAZOLE [Concomitant]
     Active Substance: KETOCONAZOLE
  13. IBUPROFEN [Concomitant]
     Active Substance: IBUPROFEN
  14. HYDROCORTISONE [Concomitant]
     Active Substance: HYDROCORTISONE
  15. ADRUCIL [Concomitant]
     Active Substance: FLUOROURACIL
  16. LOTRISONE [Concomitant]
     Active Substance: BETAMETHASONE DIPROPIONATE\CLOTRIMAZOLE
  17. TYLENOL [Concomitant]
     Active Substance: ACETAMINOPHEN
  18. COREG [Concomitant]
     Active Substance: CARVEDILOL

REACTIONS (7)
  - Therapy interrupted [None]
  - Dehydration [None]
  - Renal impairment [None]
  - Diarrhoea [None]
  - Decreased appetite [None]
  - Weight decreased [None]
  - Nausea [None]

NARRATIVE: CASE EVENT DATE: 20220128
